FAERS Safety Report 5494981-5 (Version None)
Quarter: 2007Q4

REPORT INFORMATION
  Report Type: 
  Country: None (occurrence: None)
  Receive Date: 20071024
  Receipt Date: 20071016
  Transmission Date: 20080405
  Serious: Yes (Hospitalization)
  Sender: FDA-Public Use
  Company Number: ES-AVENTIS-200714910EU

PATIENT
  Age: 90 Year
  Sex: Female

DRUGS (2)
  1. SEGURIL                            /00032601/ [Suspect]
     Route: 048
     Dates: start: 20040101, end: 20061011
  2. COZAAR [Suspect]
     Route: 048
     Dates: start: 20040101, end: 20061011

REACTIONS (1)
  - RENAL FAILURE CHRONIC [None]
